FAERS Safety Report 7998047-1 (Version None)
Quarter: 2011Q4

REPORT INFORMATION
  Report Type: 
  Country: None (occurrence: None)
  Receive Date: 20111221
  Receipt Date: 20101210
  Transmission Date: 20120403
  Serious: No
  Sender: FDA-Public Use
  Company Number: US-GLAXOSMITHKLINE-A0899308A

PATIENT
  Age: 66 Year
  Sex: Male
  Weight: 62.7 kg

DRUGS (3)
  1. XALATAN [Concomitant]
     Indication: GLAUCOMA
  2. LOVAZA [Suspect]
     Indication: BLOOD TRIGLYCERIDES INCREASED
     Dosage: 4G PER DAY
     Route: 048
     Dates: start: 20070101
  3. NIASPAN [Concomitant]
     Indication: BLOOD CHOLESTEROL INCREASED
     Dosage: 1000MG PER DAY
     Route: 048
     Dates: start: 20080910

REACTIONS (2)
  - ERUCTATION [None]
  - PRODUCT QUALITY ISSUE [None]
